FAERS Safety Report 18247257 (Version 1)
Quarter: 2020Q3

REPORT INFORMATION
  Report Type: Spontaneous
  Country: AU (occurrence: AU)
  Receive Date: 20200909
  Receipt Date: 20200909
  Transmission Date: 20201103
  Serious: Yes (Life-Threatening, Hospitalization, Other)
  Sender: FDA-Public Use
  Company Number: AU-AMGEN-AUSSP2020141805

PATIENT
  Age: 56 Year
  Sex: Female

DRUGS (10)
  1. THIAMINE. [Concomitant]
     Active Substance: THIAMINE
     Dosage: 100 MILLIGRAM, TID
  2. CALTRATE [Concomitant]
     Active Substance: CALCIUM CARBONATE
     Dosage: 1200 MILLIGRAM, BID
  3. PROLIA [Suspect]
     Active Substance: DENOSUMAB
     Indication: OSTEOPOROSIS
     Dosage: 60 MILLIGRAM, Q6MO
     Route: 058
  4. PANCREATIC ENZYMES [Concomitant]
     Active Substance: UNSPECIFIED INGREDIENT
     Dosage: 50000 UNIT, TID
  5. LACTULOSE. [Concomitant]
     Active Substance: LACTULOSE
     Dosage: 20 MILLILITER, Q4H
  6. CALCITRIOL. [Concomitant]
     Active Substance: CALCITRIOL
     Dosage: 0.25 MICROGRAM, BID
     Route: 048
  7. PANTOPRAZOLE [Concomitant]
     Active Substance: PANTOPRAZOLE
     Dosage: 40 MILLIGRAM, BID
  8. PHOSPHATES [SODIUM PHOSPHATE] [Concomitant]
     Active Substance: SODIUM PHOSPHATE
     Dosage: 1000 MILLIGRAM, BID
     Route: 048
  9. VITAMIN D [COLECALCIFEROL] [Concomitant]
     Active Substance: CHOLECALCIFEROL
  10. CALCIUM [Concomitant]
     Active Substance: CALCIUM
     Dosage: 1200 MILLIGRAM, QD

REACTIONS (14)
  - Hypophosphataemia [Unknown]
  - Gamma-glutamyltransferase increased [Unknown]
  - Blood alkaline phosphatase increased [Unknown]
  - Nausea [Recovered/Resolved]
  - Abdominal pain upper [Unknown]
  - Blood parathyroid hormone increased [Unknown]
  - Pancreatic atrophy [Unknown]
  - Diarrhoea [Not Recovered/Not Resolved]
  - Hypoalbuminaemia [Unknown]
  - Supraventricular tachycardia [Unknown]
  - Vitamin D deficiency [Unknown]
  - Hypocalcaemia [Unknown]
  - Pancreatic calcification [Unknown]
  - Vomiting [Not Recovered/Not Resolved]
